FAERS Safety Report 23197488 (Version 1)
Quarter: 2023Q4

REPORT INFORMATION
  Report Type: Spontaneous
  Country: US (occurrence: None)
  Receive Date: 20231117
  Receipt Date: 20231117
  Transmission Date: 20240110
  Serious: Yes (Life-Threatening)
  Sender: FDA-Public Use
  Company Number: None

PATIENT
  Age: 24 Year
  Sex: Female
  Weight: 112.5 kg

DRUGS (9)
  1. SINGULAIR [Suspect]
     Active Substance: MONTELUKAST SODIUM
     Indication: Asthma
     Dosage: OTHER QUANTITY : 1 TABLET(S);?FREQUENCY : AT BEDTIME;?
     Route: 048
     Dates: start: 20230313, end: 20231016
  2. SINGULAIR [Suspect]
     Active Substance: MONTELUKAST SODIUM
     Indication: Hypersensitivity
  3. AMITRIPTYLINE [Concomitant]
  4. NORETHINDRONE [Concomitant]
     Active Substance: NORETHINDRONE
  5. ALBUTEROL SULFATE [Concomitant]
     Active Substance: ALBUTEROL SULFATE
  6. Excedrin [Concomitant]
  7. NAPROXEN [Concomitant]
  8. SODIUM [Concomitant]
  9. IBUPROFEN [Concomitant]
     Active Substance: IBUPROFEN

REACTIONS (8)
  - Nightmare [None]
  - Memory impairment [None]
  - Disturbance in attention [None]
  - Depression [None]
  - Suicidal ideation [None]
  - Depressed mood [None]
  - Feeling of despair [None]
  - Asthenia [None]
